FAERS Safety Report 14362200 (Version 1)
Quarter: 2018Q1

REPORT INFORMATION
  Report Type: Spontaneous
  Country: US (occurrence: US)
  Receive Date: 20180108
  Receipt Date: 20180108
  Transmission Date: 20180509
  Serious: No
  Sender: FDA-Public Use
  Company Number: US-ASTRAZENECA-2018SE02011

PATIENT

DRUGS (1)
  1. SYMBICORT [Suspect]
     Active Substance: BUDESONIDE\FORMOTEROL FUMARATE DIHYDRATE
     Route: 055

REACTIONS (6)
  - Hypertension [Unknown]
  - Cough [Unknown]
  - Discomfort [Unknown]
  - Pulmonary congestion [Unknown]
  - Dyspnoea [Unknown]
  - Product use issue [Unknown]
